FAERS Safety Report 6685471-2 (Version None)
Quarter: 2010Q2

REPORT INFORMATION
  Report Type: 
  Country: None (occurrence: None)
  Receive Date: 20100419
  Receipt Date: 20100409
  Transmission Date: 20101027
  Serious: Yes (Other)
  Sender: FDA-Public Use
  Company Number: US-BIOGENIDEC-2010BI010090

PATIENT
  Sex: Male

DRUGS (10)
  1. AVONEX [Suspect]
     Indication: MULTIPLE SCLEROSIS
     Route: 030
     Dates: start: 19960501
  2. HYDRALAZINE HCL [Concomitant]
  3. HYDROCHLOROTHIAZIDE [Concomitant]
  4. CLONIDINE [Concomitant]
  5. BYSTOLIC [Concomitant]
  6. LIPITOR [Concomitant]
     Dates: start: 20080101, end: 20090101
  7. ASPIRIN [Concomitant]
  8. CRESTOR [Concomitant]
  9. LISINOPRIL [Concomitant]
  10. MEDICATIONS (NOS) [Concomitant]

REACTIONS (28)
  - ABASIA [None]
  - APRAXIA [None]
  - ASTHENIA [None]
  - BLOOD PRESSURE FLUCTUATION [None]
  - BLOOD PRESSURE INADEQUATELY CONTROLLED [None]
  - CEREBRAL INFARCTION [None]
  - CORONARY ARTERY BYPASS [None]
  - DEPRESSED MOOD [None]
  - FALL [None]
  - FEELING COLD [None]
  - GAIT DISTURBANCE [None]
  - GAIT SPASTIC [None]
  - HYPERCHOLESTEROLAEMIA [None]
  - HYPERTENSION [None]
  - INAPPROPRIATE SCHEDULE OF DRUG ADMINISTRATION [None]
  - INCONTINENCE [None]
  - LABILE HYPERTENSION [None]
  - MUSCULAR WEAKNESS [None]
  - NEOPLASM [None]
  - OPHTHALMOPLEGIA [None]
  - PERIPHERAL ARTERIAL OCCLUSIVE DISEASE [None]
  - PERONEAL NERVE PALSY [None]
  - POSTURE ABNORMAL [None]
  - RENAL ARTERY STENOSIS [None]
  - RIB FRACTURE [None]
  - SUBCLAVIAN STEAL SYNDROME [None]
  - URINARY INCONTINENCE [None]
  - WEIGHT BEARING DIFFICULTY [None]
